FAERS Safety Report 18189705 (Version 1)
Quarter: 2020Q3

REPORT INFORMATION
  Report Type: Spontaneous
  Country: IN (occurrence: IN)
  Receive Date: 20200824
  Receipt Date: 20200824
  Transmission Date: 20201103
  Serious: Yes (Death)
  Sender: FDA-Public Use
  Company Number: IN-FRESENIUS KABI-FK202008512

PATIENT
  Sex: Male

DRUGS (8)
  1. CISPLATIN (MANUFACTURER UNKNOWN) [Suspect]
     Active Substance: CISPLATIN
     Indication: CONGENITAL TERATOMA
     Dosage: 4 CYCLE
     Route: 065
  2. PACLITAXEL (MANUFACTURER UNKNOWN) [Suspect]
     Active Substance: PACLITAXEL
     Indication: CONGENITAL TERATOMA
     Dosage: 4 CYCLE
     Route: 065
  3. ETOPOSIDE. [Suspect]
     Active Substance: ETOPOSIDE
     Indication: CONGENITAL TERATOMA
     Dosage: 6 CYCLE
     Route: 065
  4. BLEOMYCIN [Suspect]
     Active Substance: BLEOMYCIN SULFATE
     Indication: CONGENITAL TERATOMA
     Dosage: 6 CYCLE
     Route: 065
  5. CARBOPLATIN. [Suspect]
     Active Substance: CARBOPLATIN
     Indication: CONGENITAL TERATOMA
     Dosage: 2 CYCLE
     Route: 065
  6. IFOSFAMIDE. [Suspect]
     Active Substance: IFOSFAMIDE
     Indication: CONGENITAL TERATOMA
     Dosage: 4 CYCLE
     Route: 065
  7. CISPLATIN (MANUFACTURER UNKNOWN) [Suspect]
     Active Substance: CISPLATIN
     Dosage: 6 CYCLE
     Route: 065
  8. ETOPOSIDE. [Suspect]
     Active Substance: ETOPOSIDE
     Dosage: 2 CYCLE
     Route: 065

REACTIONS (1)
  - Febrile neutropenia [Fatal]
